FAERS Safety Report 7593326-4 (Version None)
Quarter: 2011Q3

REPORT INFORMATION
  Report Type: 
  Country: None (occurrence: None)
  Receive Date: 20110706
  Receipt Date: 20110701
  Transmission Date: 20111222
  Serious: Yes (Hospitalization)
  Sender: FDA-Public Use
  Company Number: IT-PFIZER INC-2011139726

PATIENT
  Age: 70 Year
  Sex: Female

DRUGS (6)
  1. VASERETIC [Suspect]
     Indication: HYPERTENSION
     Dosage: 20MG + 12.5MG, DAILY
     Route: 048
     Dates: start: 20070131, end: 20100131
  2. ENALAPRIL MALEATE [Suspect]
     Indication: HYPERTENSION
     Dosage: 5 MG, DAILY
     Route: 048
     Dates: start: 20030131, end: 20100131
  3. CARDURA [Suspect]
     Indication: HYPERTENSION
     Dosage: 4 MG, DAILY
     Route: 048
     Dates: start: 20050131, end: 20100131
  4. BARNIDIPINE HYDROCHLORIDE [Suspect]
     Indication: HYPERTENSION
     Dosage: 10 MG, DAILY
     Route: 048
     Dates: start: 20070131, end: 20100131
  5. ATORVASTATIN CALCIUM [Concomitant]
     Indication: DYSLIPIDAEMIA
     Dosage: UNK
  6. TENORMIN [Suspect]
     Indication: HYPERTENSION
     Dosage: 100 MG, DAILY
     Route: 048
     Dates: start: 20030131

REACTIONS (3)
  - HEAD INJURY [None]
  - SYNCOPE [None]
  - FALL [None]
